FAERS Safety Report 15419890 (Version 2)
Quarter: 2018Q4

REPORT INFORMATION
  Report Type: Report from Study
  Country: IT (occurrence: IT)
  Receive Date: 20180924
  Receipt Date: 20181008
  Transmission Date: 20190204
  Serious: Yes (Hospitalization)
  Sender: FDA-Public Use
  Company Number: IT-PFIZER INC-2018380151

PATIENT
  Age: 55 Year
  Sex: Male

DRUGS (6)
  1. FLUOROURACILE AHCL [Suspect]
     Active Substance: FLUOROURACIL
     Indication: ADENOCARCINOMA OF COLON
     Dosage: 2400 MG, SINGLE
     Route: 042
     Dates: start: 20180626, end: 20180626
  2. OXALIPLATIN. [Suspect]
     Active Substance: OXALIPLATIN
     Indication: ADENOCARCINOMA OF COLON
     Dosage: 128 MG, TOTAL
     Route: 042
     Dates: start: 20180625, end: 20180625
  3. FLUOROURACILE AHCL [Suspect]
     Active Substance: FLUOROURACIL
     Dosage: 800 MG, UNK
     Route: 042
     Dates: start: 20180625, end: 20180625
  4. DEXAMETHASONE PHOSPHATE [Concomitant]
     Active Substance: DEXAMETHASONE PHOSPHATE
  5. CALCIUM LEVOFOLINATE [Concomitant]
     Active Substance: LEVOLEUCOVORIN CALCIUM
  6. ONDANSETRONE ACCORD HEALTHCARE [Concomitant]

REACTIONS (5)
  - Abdominal pain [Unknown]
  - Diarrhoea [Unknown]
  - Leukopenia [Unknown]
  - Hyperpyrexia [Unknown]
  - Asthenia [Unknown]

NARRATIVE: CASE EVENT DATE: 20180702
